FAERS Safety Report 5168049-1 (Version None)
Quarter: 2006Q4

REPORT INFORMATION
  Report Type: 
  Country: None (occurrence: None)
  Receive Date: 20061208
  Receipt Date: 20060508
  Transmission Date: 20070319
  Serious: No
  Sender: FDA-Public Use
  Company Number: US-GLAXOSMITHKLINE-A0604677A

PATIENT
  Age: 40 Year
  Sex: Female

DRUGS (3)
  1. AVANDAMET [Suspect]
     Dosage: 2MG TWICE PER DAY
     Route: 048
     Dates: start: 20050801
  2. ENALAPRIL MALEATE [Concomitant]
  3. GLIMEPIRIDE [Concomitant]

REACTIONS (1)
  - BLOOD PRESSURE INCREASED [None]
